FAERS Safety Report 8298408-X (Version None)
Quarter: 2012Q2

REPORT INFORMATION
  Report Type: 
  Country: None (occurrence: None)
  Receive Date: 20120419
  Receipt Date: 20120413
  Transmission Date: 20120825
  Serious: Yes (Hospitalization)
  Sender: FDA-Public Use
  Company Number: FR-PFIZER INC-2007033534

PATIENT
  Age: 50 Year
  Sex: Female
  Weight: 55 kg

DRUGS (8)
  1. IRINOTECAN HCL [Suspect]
     Indication: COLON CANCER METASTATIC
  2. FLUOROURACIL [Suspect]
     Indication: COLON CANCER METASTATIC
  3. AVASTIN [Suspect]
     Indication: COLON CANCER
     Dosage: 290 MG, CYCLIC
     Route: 042
     Dates: start: 20070220, end: 20070306
  4. FLUOROURACIL [Suspect]
     Indication: COLON CANCER
     Dosage: 4.2 G, CYCLIC
     Route: 042
     Dates: start: 20070220, end: 20070306
  5. AVASTIN [Suspect]
     Indication: COLON CANCER METASTATIC
  6. CALCIUM FOLINATE [Concomitant]
     Indication: COLON CANCER
     Dosage: UNK
     Dates: start: 20070220, end: 20070306
  7. IRINOTECAN HCL [Suspect]
     Indication: COLON CANCER
     Dosage: 280 MG, CYCLIC
     Route: 042
     Dates: start: 20070220, end: 20070306
  8. CALCIUM FOLINATE [Concomitant]
     Indication: COLON CANCER METASTATIC

REACTIONS (4)
  - ABDOMINAL PAIN [None]
  - PYREXIA [None]
  - INTESTINAL PERFORATION [None]
  - PNEUMOPERITONEUM [None]
